FAERS Safety Report 5077595-0 (Version None)
Quarter: 2006Q3

REPORT INFORMATION
  Report Type: 
  Country: None (occurrence: None)
  Receive Date: 20060810
  Receipt Date: 20060417
  Transmission Date: 20061208
  Serious: No
  Sender: FDA-Public Use
  Company Number: US-GLAXOSMITHKLINE-A0601977A

PATIENT
  Age: 50 Year
  Sex: Female
  Weight: 59.1 kg

DRUGS (3)
  1. PAROXETINE HCL [Suspect]
     Indication: DEPRESSION
     Dosage: 10MG PER DAY
     Route: 048
     Dates: start: 20020101, end: 20060414
  2. PAXIL CR [Suspect]
     Indication: DEPRESSION
     Route: 048
     Dates: start: 20051101
  3. PREVACID [Concomitant]

REACTIONS (7)
  - DIZZINESS [None]
  - MOVEMENT DISORDER [None]
  - NAUSEA [None]
  - NEURALGIA [None]
  - PARAESTHESIA [None]
  - POLYNEUROPATHY [None]
  - VIRAL INFECTION [None]
